FAERS Safety Report 17847905 (Version 5)
Quarter: 2020Q3

REPORT INFORMATION
  Report Type: Spontaneous
  Country: US (occurrence: US)
  Receive Date: 20200601
  Receipt Date: 20200818
  Transmission Date: 20201103
  Serious: Yes (Hospitalization)
  Sender: FDA-Public Use
  Company Number: US-ACTELION-A-NJ2020-205526

PATIENT
  Age: 29 Year
  Sex: Female
  Weight: 90.7 kg

DRUGS (6)
  1. OPSUMIT [Suspect]
     Active Substance: MACITENTAN
     Indication: PULMONARY ARTERIAL HYPERTENSION
     Dosage: 10 MG, QD
     Route: 048
  2. VELETRI [Suspect]
     Active Substance: EPOPROSTENOL
     Dosage: 26 NG/KG, PER MIN
     Route: 042
  3. VELETRI [Suspect]
     Active Substance: EPOPROSTENOL
     Indication: PULMONARY ARTERIAL HYPERTENSION
     Dosage: 29 NG/KG, PER MIN
     Route: 042
  4. VELETRI [Suspect]
     Active Substance: EPOPROSTENOL
     Dosage: 24 NG/KG, PER MIN
     Route: 042
  5. VELETRI [Suspect]
     Active Substance: EPOPROSTENOL
     Dosage: 38 NG/KG, PER MIN
     Route: 042
  6. ELIQUIS [Concomitant]
     Active Substance: APIXABAN

REACTIONS (12)
  - Complication associated with device [Unknown]
  - Device alarm issue [Unknown]
  - Palpitations [Unknown]
  - Eye irritation [Unknown]
  - Vomiting [Unknown]
  - Back pain [Unknown]
  - Presyncope [Unknown]
  - Joint stiffness [Unknown]
  - Pain [Unknown]
  - Headache [Unknown]
  - Flushing [Unknown]
  - Hot flush [Unknown]

NARRATIVE: CASE EVENT DATE: 202005
